FAERS Safety Report 5732003-9 (Version None)
Quarter: 2008Q2

REPORT INFORMATION
  Report Type: 
  Country: None (occurrence: None)
  Receive Date: 20080508
  Receipt Date: 20080428
  Transmission Date: 20081010
  Serious: Yes (Other)
  Sender: FDA-Public Use
  Company Number: US-JNJFOC-20080407642

PATIENT
  Sex: Male

DRUGS (1)
  1. RENOVA 0.05% [Suspect]
     Indication: DRUG USE FOR UNKNOWN INDICATION
     Route: 061

REACTIONS (7)
  - ABDOMINAL PAIN UPPER [None]
  - CARDIAC DISORDER [None]
  - DISTURBANCE IN ATTENTION [None]
  - EAR PAIN [None]
  - FATIGUE [None]
  - GINGIVITIS [None]
  - HEADACHE [None]
